FAERS Safety Report 7444900-7 (Version None)
Quarter: 2011Q2

REPORT INFORMATION
  Report Type: 
  Country: None (occurrence: None)
  Receive Date: 20110429
  Receipt Date: 20110418
  Transmission Date: 20111010
  Serious: Yes (Life-Threatening, Hospitalization)
  Sender: FDA-Public Use
  Company Number: FR-BRISTOL-MYERS SQUIBB COMPANY-15702525

PATIENT
  Age: 65 Year
  Sex: Female

DRUGS (1)
  1. GLUCOPHAGE [Suspect]
     Indication: TYPE 2 DIABETES MELLITUS
     Dosage: GLUCOPHAGE 500MG
     Route: 048
     Dates: end: 20110328

REACTIONS (3)
  - LACTIC ACIDOSIS [None]
  - HYPERKALAEMIA [None]
  - RENAL FAILURE ACUTE [None]
